FAERS Safety Report 12412169 (Version 4)
Quarter: 2016Q3

REPORT INFORMATION
  Report Type: Report from Study
  Country: GB (occurrence: GB)
  Receive Date: 20160527
  Receipt Date: 20160718
  Transmission Date: 20161109
  Serious: Yes (Hospitalization, Disabling, Other)
  Sender: FDA-Public Use
  Company Number: GB-ABBVIE-16P-167-1637185-00

PATIENT
  Sex: Female

DRUGS (1)
  1. DUODOPA [Suspect]
     Active Substance: CARBIDOPA\LEVODOPA
     Indication: PARKINSON^S DISEASE
     Dosage: DUODOPA 100ML CASSETTE/1 CASSETTE DAILY
     Route: 050

REACTIONS (10)
  - Bedridden [Unknown]
  - Device occlusion [Unknown]
  - Stoma site inflammation [Unknown]
  - Liver disorder [Unknown]
  - Incorrect route of drug administration [Unknown]
  - Bedridden [Recovered/Resolved]
  - Stoma site discharge [Unknown]
  - Stoma site erythema [Unknown]
  - Condition aggravated [Unknown]
  - Impaired self-care [Unknown]
